FAERS Safety Report 5731981-1 (Version None)
Quarter: 2008Q2

REPORT INFORMATION
  Report Type: 
  Country: None (occurrence: None)
  Receive Date: 20080508
  Receipt Date: 20080429
  Transmission Date: 20081010
  Serious: Yes (Other)
  Sender: FDA-Public Use
  Company Number: US-JNJFOC-20080500409

PATIENT
  Age: 35 Year
  Sex: Female
  Weight: 107.96 kg

DRUGS (3)
  1. INVEGA [Suspect]
     Route: 048
  2. INVEGA [Suspect]
     Indication: DRUG USE FOR UNKNOWN INDICATION
     Route: 048
  3. ZOLOFT [Concomitant]
     Route: 048

REACTIONS (2)
  - AMENORRHOEA [None]
  - WEIGHT INCREASED [None]
